FAERS Safety Report 7038012-4 (Version None)
Quarter: 2010Q4

REPORT INFORMATION
  Report Type: 
  Country: None (occurrence: None)
  Receive Date: 20101011
  Receipt Date: 20101001
  Transmission Date: 20110411
  Serious: Yes (Death, Hospitalization, Other)
  Sender: FDA-Public Use
  Company Number: US-MPIJNJ-2010-04531

PATIENT
  Sex: Male

DRUGS (24)
  1. VELCADE [Suspect]
     Indication: MULTIPLE MYELOMA
     Dosage: UNK
     Route: 042
     Dates: end: 20081106
  2. VELCADE [Suspect]
     Dosage: UNK
     Dates: start: 20100202
  3. TANESPIMYCIN [Suspect]
     Indication: MULTIPLE MYELOMA
     Dosage: UNK
     Dates: end: 20081106
  4. DEXAMETHASONE [Suspect]
     Indication: MULTIPLE MYELOMA
     Dosage: UNK
     Dates: start: 20100202
  5. MORPHINE [Concomitant]
     Indication: PAIN
     Dosage: 30 MG, PRN
     Route: 048
  6. FUROSEMIDE [Concomitant]
     Indication: PRODUCT USED FOR UNKNOWN INDICATION
     Dosage: UNK
     Route: 048
  7. NYSTATIN [Concomitant]
     Indication: PRODUCT USED FOR UNKNOWN INDICATION
     Dosage: 100000 UNK, QID
     Route: 048
  8. COMPAZINE [Concomitant]
     Indication: PRODUCT USED FOR UNKNOWN INDICATION
     Dosage: 10 MG, PRN
     Route: 048
  9. ACIPHEX [Concomitant]
     Indication: PRODUCT USED FOR UNKNOWN INDICATION
     Dosage: 20 MG, QD
     Route: 048
  10. MS CONTIN [Concomitant]
     Indication: PRODUCT USED FOR UNKNOWN INDICATION
     Dosage: 100 MG, BID
     Route: 048
  11. MYLANTA                            /00036701/ [Concomitant]
     Indication: PRODUCT USED FOR UNKNOWN INDICATION
     Dosage: 30 ML, PRN
     Route: 048
  12. MAALOX PLUS                        /00258601/ [Concomitant]
     Indication: PRODUCT USED FOR UNKNOWN INDICATION
     Dosage: 30 ML, PRN
     Route: 048
  13. SODIUM BICARBONATE [Concomitant]
     Indication: PRODUCT USED FOR UNKNOWN INDICATION
     Dosage: 650 MG, TID
     Route: 048
  14. ZOVIRAX                            /00587301/ [Concomitant]
     Indication: PRODUCT USED FOR UNKNOWN INDICATION
     Dosage: 200 MG, BID
     Route: 048
  15. ZYLOPRIM [Concomitant]
     Indication: PRODUCT USED FOR UNKNOWN INDICATION
     Dosage: 100 MG, QD
     Route: 048
  16. COLACE [Concomitant]
     Indication: CONSTIPATION
     Dosage: 100 MG, PRN
     Route: 048
  17. GLYCOLAX [Concomitant]
     Indication: PRODUCT USED FOR UNKNOWN INDICATION
     Dosage: 17 G, BID
     Route: 048
  18. MIRALAX [Concomitant]
     Indication: PRODUCT USED FOR UNKNOWN INDICATION
     Dosage: 17 G, BID
     Route: 048
  19. SENOKOT [Concomitant]
     Indication: PRODUCT USED FOR UNKNOWN INDICATION
     Dosage: UNK
     Route: 048
  20. DULCOLAX [Concomitant]
     Indication: PRODUCT USED FOR UNKNOWN INDICATION
     Dosage: 10 MG, PRN
     Route: 054
  21. PREVACID [Concomitant]
     Indication: PRODUCT USED FOR UNKNOWN INDICATION
     Dosage: 30 MG, QD
     Route: 048
  22. PAXIL [Concomitant]
     Indication: PRODUCT USED FOR UNKNOWN INDICATION
     Dosage: 10 MG, QD
     Route: 048
  23. ATIVAN [Concomitant]
     Indication: PROPHYLAXIS
     Dosage: 1 MG, PRN
     Route: 048
  24. VITAMIN B6 [Concomitant]
     Indication: PRODUCT USED FOR UNKNOWN INDICATION
     Dosage: 100 MG, QD
     Route: 048

REACTIONS (11)
  - CONVULSION [None]
  - FAILURE TO THRIVE [None]
  - HYPERBILIRUBINAEMIA [None]
  - HYPOALBUMINAEMIA [None]
  - INTERNATIONAL NORMALISED RATIO INCREASED [None]
  - OEDEMA PERIPHERAL [None]
  - PENILE SWELLING [None]
  - PLASMACYTOMA [None]
  - RECALL PHENOMENON [None]
  - RENAL FAILURE ACUTE [None]
  - SCROTAL SWELLING [None]
